FAERS Safety Report 9984351 (Version 10)
Quarter: 2014Q4

REPORT INFORMATION
  Report Type: Report from Study
  Country: US (occurrence: US)
  Receive Date: 20140307
  Receipt Date: 20141027
  Transmission Date: 20150529
  Serious: Yes (Death, Hospitalization, Other)
  Sender: FDA-Public Use
  Company Number: US-ALEXION-A201400207

PATIENT

DRUGS (3)
  1. SOLIRIS [Suspect]
     Active Substance: ECULIZUMAB
     Indication: HAEMOLYTIC URAEMIC SYNDROME
     Dosage: 1200 MG, Q2W
     Route: 042
     Dates: start: 20130815
  2. SOLIRIS [Suspect]
     Active Substance: ECULIZUMAB
     Dosage: 1200 MG, QW
     Route: 042
  3. SOLIRIS [Suspect]
     Active Substance: ECULIZUMAB
     Dosage: UNK
     Route: 042

REACTIONS (26)
  - Transient ischaemic attack [Unknown]
  - Cardiac failure congestive [Unknown]
  - Confusional state [Unknown]
  - Malaise [Unknown]
  - Headache [Not Recovered/Not Resolved]
  - Gastrointestinal pain [Unknown]
  - Cough [Unknown]
  - Lacunar infarction [Unknown]
  - Clostridium difficile infection [Unknown]
  - Anaemia [Unknown]
  - Pain [Not Recovered/Not Resolved]
  - Death [Fatal]
  - Blood lactate dehydrogenase increased [Unknown]
  - Insomnia [Not Recovered/Not Resolved]
  - Fall [Unknown]
  - Fatigue [Unknown]
  - Incorrect dose administered [Unknown]
  - Pulmonary oedema [Unknown]
  - Surgery [Unknown]
  - Haemoglobin decreased [Unknown]
  - Haemorrhage [Unknown]
  - Haematochezia [Unknown]
  - Unevaluable event [Unknown]
  - Dyspnoea [Unknown]
  - Pain in extremity [Unknown]
  - General physical health deterioration [Unknown]

NARRATIVE: CASE EVENT DATE: 20130815
